FAERS Safety Report 8735584 (Version 2)
Quarter: 2012Q4

REPORT INFORMATION
  Report Type: 
  Country: US (occurrence: US)
  Receive Date: 20120822
  Receipt Date: 20120904
  Transmission Date: 20130627
  Serious: No
  Sender: FDA-Public Use
  Company Number: US-PFIZER INC-2012201055

PATIENT
  Age: 42 Year
  Sex: Female
  Weight: 79.37 kg

DRUGS (11)
  1. ZOLOFT [Suspect]
     Indication: ANXIETY
     Dosage: 100 mg, daily in the morning
     Route: 048
  2. ZOLOFT [Suspect]
     Indication: FEELING ABNORMAL
     Dosage: 200 mg, daily in the morning
     Route: 048
  3. ZOLOFT [Suspect]
     Indication: RESTLESSNESS
  4. ZOLOFT [Suspect]
     Indication: OBSESSIVE-COMPULSIVE DISORDER
  5. LYRICA [Suspect]
     Indication: FIBROMYALGIA
     Dosage: 150 mg, 2x/day
     Route: 048
  6. IBUPROFEN [Suspect]
     Indication: FIBROMYALGIA
     Dosage: 800 mg, UNK
  7. TYLENOL W/CODEINE [Suspect]
     Indication: FIBROMYALGIA
     Dosage: UNK
  8. VICODIN [Suspect]
     Indication: FIBROMYALGIA
     Dosage: UNK
  9. DOXEPIN [Concomitant]
     Indication: SLEEP DISORDER
     Dosage: 150 mg, daily at night
  10. CLONAZEPAM [Concomitant]
     Indication: PANIC ATTACK
     Dosage: 2 mg, daily
     Dates: start: 1994
  11. CLONAZEPAM [Concomitant]
     Dosage: 1 mg, daily

REACTIONS (6)
  - Abdominal discomfort [Unknown]
  - Weight increased [Unknown]
  - Dyspepsia [Unknown]
  - Swelling [Unknown]
  - Increased appetite [Unknown]
  - Drug ineffective [Unknown]
